FAERS Safety Report 7062470-2 (Version None)
Quarter: 2010Q4

REPORT INFORMATION
  Report Type: 
  Country: None (occurrence: None)
  Receive Date: 20101026
  Receipt Date: 20091029
  Transmission Date: 20110411
  Serious: No
  Sender: FDA-Public Use
  Company Number: US-PFIZER INC-2006014585

PATIENT
  Sex: Female
  Weight: 68.027 kg

DRUGS (6)
  1. LIPITOR [Suspect]
     Indication: BLOOD CHOLESTEROL INCREASED
     Dosage: 20 MG, 1X/DAY
     Route: 048
  2. COSOPT [Concomitant]
     Dosage: UNK
     Route: 047
  3. ALPHAGAN [Concomitant]
     Dosage: UNK
     Route: 047
  4. LUMIGAN [Concomitant]
     Dosage: UNK
     Route: 047
  5. FOSAMAX [Concomitant]
     Indication: OSTEOPOROSIS
     Dosage: UNK
  6. MIACALCIN [Concomitant]
     Dosage: UNK

REACTIONS (2)
  - MUSCLE TIGHTNESS [None]
  - MYALGIA [None]
